FAERS Safety Report 7907526-4 (Version None)
Quarter: 2011Q4

REPORT INFORMATION
  Report Type: 
  Country: None (occurrence: None)
  Receive Date: 20111110
  Receipt Date: 20111031
  Transmission Date: 20120403
  Serious: Yes (Hospitalization, Other)
  Sender: FDA-Public Use
  Company Number: PHHO2011DE018414

PATIENT
  Sex: Female
  Weight: 99 kg

DRUGS (7)
  1. LEVOTHYROXINE SODIUM [Concomitant]
     Indication: HYPOTHYROIDISM
     Dosage: 150 MG, BID
     Route: 048
     Dates: start: 20010101
  2. IBUPROFEN TABLETS [Concomitant]
     Dosage: 400 MG, UNK
  3. LETROZOLE [Suspect]
     Dosage: 2.5 MG, QD
     Route: 048
  4. NOVAMINE [Concomitant]
     Dosage: UNK
  5. TRAMADOL HYDROCHLORIDE [Concomitant]
     Dosage: 100 MG, UNK
  6. LETROZOLE [Suspect]
     Indication: BREAST CANCER
     Dosage: 2.5 MG, QD
     Route: 048
     Dates: start: 20070112
  7. NEXIUM [Concomitant]
     Dosage: 20 MG, UNK

REACTIONS (4)
  - AGRANULOCYTOSIS [None]
  - LUMBAR VERTEBRAL FRACTURE [None]
  - COLON CANCER [None]
  - NEOPLASM MALIGNANT [None]
